FAERS Safety Report 8910153 (Version 1)
Quarter: 2012Q4

REPORT INFORMATION
  Report Type: 
  Country: US (occurrence: US)
  Receive Date: 20121115
  Receipt Date: 20121115
  Transmission Date: 20130627
  Serious: Yes (Other)
  Sender: FDA-Public Use
  Company Number: US-AMGEN-USASP2012072349

PATIENT
  Age: 58 Year
  Sex: Female

DRUGS (3)
  1. ENBREL [Suspect]
     Indication: RHEUMATOID ARTHRITIS
     Dosage: 50 mg, qwk
     Dates: start: 20120404, end: 20121025
  2. METHOTREXATE [Concomitant]
     Dosage: 2.5 mg, qwk 7 tablets
     Dates: start: 2011
  3. MELOXICAM [Concomitant]
     Dosage: 15 mg, 1 tablet daily

REACTIONS (4)
  - Phlebitis [Not Recovered/Not Resolved]
  - Arthralgia [Not Recovered/Not Resolved]
  - Gait disturbance [Not Recovered/Not Resolved]
  - Foot deformity [Not Recovered/Not Resolved]
